FAERS Safety Report 6647667-5 (Version None)
Quarter: 2010Q1

REPORT INFORMATION
  Report Type: 
  Country: None (occurrence: None)
  Receive Date: 20100323
  Receipt Date: 20100323
  Transmission Date: 20100710
  Serious: Yes (Death)
  Sender: FDA-Public Use
  Company Number: None

PATIENT
  Age: 40 Year
  Sex: Female
  Weight: 102.0593 kg

DRUGS (4)
  1. DESIPRAMINE HCL [Suspect]
     Indication: BIPOLAR DISORDER
     Dates: start: 20080410
  2. DESIPRAMINE HCL [Suspect]
     Indication: PSYCHOTIC DISORDER
     Dates: start: 20080410
  3. VALPROIC ACID [Suspect]
     Dates: start: 20080410
  4. QUETIAPINE [Suspect]
     Dates: start: 20080410

REACTIONS (1)
  - DRUG TOXICITY [None]
